FAERS Safety Report 16941088 (Version 1)
Quarter: 2019Q4

REPORT INFORMATION
  Report Type: Report from Study
  Country: US (occurrence: US)
  Receive Date: 20191021
  Receipt Date: 20191021
  Transmission Date: 20200122
  Serious: Yes (Hospitalization)
  Sender: FDA-Public Use
  Company Number: US-PFIZER INC-2019448590

PATIENT
  Age: 64 Year
  Sex: Female
  Weight: 107.94 kg

DRUGS (16)
  1. CHILDRENS ASPIRIN [Concomitant]
     Active Substance: ASPIRIN
     Indication: PROPHYLAXIS
     Dosage: 81 MG, 1X/DAY
     Route: 048
     Dates: start: 20170403
  2. IBRANCE [Suspect]
     Active Substance: PALBOCICLIB
     Dosage: 100 MG, 21 ON, 7 OFF ONCE A DAY (QD)
     Dates: start: 20171107, end: 20181009
  3. PROTONIX [Concomitant]
     Active Substance: PANTOPRAZOLE SODIUM
     Indication: GASTROOESOPHAGEAL REFLUX DISEASE
     Dosage: 40 MG, AS NEEDED
     Route: 048
     Dates: start: 20170403
  4. DELTASONE [Concomitant]
     Active Substance: PREDNISONE
     Dosage: 15 MG, WITH BREAKFAST
     Route: 048
  5. VITAMIN D2 [Concomitant]
     Active Substance: ERGOCALCIFEROL
     Indication: SUPPLEMENTATION THERAPY
     Dosage: 50000 IU, 2X/WEEK (Q7D)
     Route: 048
     Dates: start: 20170403
  6. NORCO [Concomitant]
     Active Substance: ACETAMINOPHEN\HYDROCODONE BITARTRATE
     Dosage: [5 MG HYDROCODONE BITARTRATE]/[325 MG PARACETAMOL] 1-2 TAB, 4X/DAY
     Route: 048
  7. CALTRATE 600 +D PLUS [Concomitant]
     Indication: ROUTINE HEALTH MAINTENANCE
     Dosage: 1 TAB, 1X/DAY
     Route: 048
     Dates: start: 20190701
  8. AVAPRO [Concomitant]
     Active Substance: IRBESARTAN
     Indication: HYPERTENSION
     Dosage: 300 MG, 1X/DAY
     Route: 048
     Dates: start: 20181211
  9. LEVOFLOXACIN. [Concomitant]
     Active Substance: LEVOFLOXACIN
     Indication: RASH
     Dosage: 250 MG, 1X/DAY
     Route: 048
     Dates: start: 20190612, end: 20190916
  10. RANITIDINE. [Concomitant]
     Active Substance: RANITIDINE
     Indication: HYPERSENSITIVITY
     Dosage: 150 MG, 1X/DAY
     Route: 048
     Dates: start: 20160916
  11. IBRANCE [Suspect]
     Active Substance: PALBOCICLIB
     Dosage: 125 MG, 21 ON, 7 OFF ONCE A DAY (QD)
     Dates: start: 20170801, end: 20171106
  12. IBUPROFEN. [Concomitant]
     Active Substance: IBUPROFEN
     Indication: ARTHRALGIA
     Dosage: 400 MG, AS NEEDED
     Route: 048
     Dates: start: 2017, end: 20190922
  13. IBUPROFEN. [Concomitant]
     Active Substance: IBUPROFEN
     Indication: RHEUMATOID ARTHRITIS
  14. XGEVA [Concomitant]
     Active Substance: DENOSUMAB
     Dosage: UNK
  15. IBRANCE [Suspect]
     Active Substance: PALBOCICLIB
     Dosage: 75 MG, 21 ON, 7 OFF ONCE A DAY (QD)
     Dates: start: 20181010, end: 20190807
  16. TOPROL XL [Concomitant]
     Active Substance: METOPROLOL SUCCINATE
     Indication: HYPERTENSION
     Dosage: 100 MG, 1X/DAY (BEDTIME)
     Route: 048
     Dates: start: 20170403

REACTIONS (2)
  - Angioedema [Recovering/Resolving]
  - Anaphylactic reaction [Recovering/Resolving]

NARRATIVE: CASE EVENT DATE: 20190807
